FAERS Safety Report 7608155-2 (Version None)
Quarter: 2011Q3

REPORT INFORMATION
  Report Type: 
  Country: None (occurrence: None)
  Receive Date: 20110714
  Receipt Date: 20110705
  Transmission Date: 20111222
  Serious: Yes (Other)
  Sender: FDA-Public Use
  Company Number: US-US-EMD SERONO, INC.-7068974

PATIENT
  Sex: Male

DRUGS (4)
  1. REBIF [Suspect]
     Indication: MULTIPLE SCLEROSIS
     Route: 058
     Dates: start: 20110701
  2. LORAZEPAM [Concomitant]
     Indication: MUSCLE SPASMS
  3. NAPROXEN (ALEVE) [Concomitant]
     Indication: MUSCLE SPASMS
  4. FLEXERIL [Concomitant]
     Indication: MUSCLE SPASMS

REACTIONS (2)
  - CONVULSION [None]
  - TRANSIENT ISCHAEMIC ATTACK [None]
